FAERS Safety Report 10056748 (Version 2)
Quarter: 2014Q2

REPORT INFORMATION
  Report Type: Spontaneous
  Country: US (occurrence: US)
  Receive Date: 20140403
  Receipt Date: 20140606
  Transmission Date: 20141212
  Serious: Yes (Hospitalization)
  Sender: FDA-Public Use
  Company Number: US-GLAXOSMITHKLINE-A1066921A

PATIENT
  Age: 47 Year
  Sex: Male
  Weight: 99.5 kg

DRUGS (2)
  1. MEKINIST [Suspect]
     Indication: MELANOMA RECURRENT
     Dosage: 2MG PER DAY
     Route: 065
     Dates: start: 2014, end: 201403
  2. TAFINLAR [Suspect]
     Indication: MELANOMA RECURRENT
     Dosage: 150MG TWICE PER DAY
     Route: 065
     Dates: start: 2014, end: 201403

REACTIONS (8)
  - Metastasis [Recovered/Resolved]
  - Nausea [Recovered/Resolved]
  - Vomiting [Recovered/Resolved]
  - Confusional state [Recovered/Resolved]
  - Pyrexia [Recovered/Resolved]
  - Chills [Recovered/Resolved]
  - Dizziness [Recovered/Resolved]
  - Dehydration [Recovered/Resolved]
